FAERS Safety Report 15337791 (Version 1)
Quarter: 2018Q3

REPORT INFORMATION
  Report Type: Spontaneous
  Country: PL (occurrence: PL)
  Receive Date: 20180831
  Receipt Date: 20180831
  Transmission Date: 20181010
  Serious: Yes (Hospitalization)
  Sender: FDA-Public Use
  Company Number: PL-ROCHE-2174268

PATIENT
  Age: 47 Year
  Sex: Female

DRUGS (6)
  1. HERCEPTIN [Suspect]
     Active Substance: TRASTUZUMAB
     Indication: METASTASES TO LIVER
  2. HERCEPTIN [Suspect]
     Active Substance: TRASTUZUMAB
     Indication: BREAST CANCER METASTATIC
     Route: 042
     Dates: end: 2018
  3. HERCEPTIN [Suspect]
     Active Substance: TRASTUZUMAB
     Indication: METASTASES TO LIVER
  4. HERCEPTIN [Suspect]
     Active Substance: TRASTUZUMAB
     Indication: BREAST CANCER METASTATIC
     Route: 058
     Dates: start: 2018
  5. PERJETA [Suspect]
     Active Substance: PERTUZUMAB
     Indication: BREAST CANCER METASTATIC
     Route: 042
  6. PERJETA [Suspect]
     Active Substance: PERTUZUMAB
     Indication: METASTASES TO LIVER

REACTIONS (5)
  - Exercise tolerance decreased [Unknown]
  - Immunodeficiency [Unknown]
  - C-reactive protein increased [Unknown]
  - Dyspnoea [Unknown]
  - Pleural effusion [Unknown]

NARRATIVE: CASE EVENT DATE: 201805
